FAERS Safety Report 8885837 (Version 1)
Quarter: 2012Q4

REPORT INFORMATION
  Report Type: 
  Country: US (occurrence: US)
  Receive Date: 20121105
  Receipt Date: 20121105
  Transmission Date: 20130627
  Serious: Yes (Hospitalization)
  Sender: FDA-Public Use
  Company Number: US-ELI_LILLY_AND_COMPANY-US201210007811

PATIENT
  Sex: Female

DRUGS (6)
  1. CYMBALTA [Suspect]
     Indication: DEPRESSION
     Dosage: 120 mg, UNK
  2. CYMBALTA [Suspect]
     Dosage: 60 mg, UNK
  3. SEROQUEL [Concomitant]
     Dosage: UNK, unknown
  4. TRAZODONE [Concomitant]
     Dosage: UNK, unknown
  5. METFORMIN [Concomitant]
     Dosage: UNK, unknown
  6. WELLBUTRIN [Concomitant]
     Dosage: UNK, unknown

REACTIONS (2)
  - Hospitalisation [Unknown]
  - Restless legs syndrome [Unknown]
